FAERS Safety Report 4769960-3 (Version None)
Quarter: 2005Q3

REPORT INFORMATION
  Report Type: 
  Country: None (occurrence: None)
  Receive Date: 20050914
  Receipt Date: 20050901
  Transmission Date: 20060218
  Serious: Yes (Life-Threatening, Hospitalization, Disabling)
  Sender: FDA-Public Use
  Company Number: HQWYE444925JUL05

PATIENT
  Age: 73 Year
  Sex: Female

DRUGS (2)
  1. PANTOZOL  (PANTOPRAZOLE) [Suspect]
     Indication: NAUSEA
     Dosage: DF ORAL
     Route: 048
     Dates: start: 20050607, end: 20050613
  2. PANTOZOL  (PANTOPRAZOLE) [Suspect]
     Indication: VOMITING
     Dosage: DF ORAL
     Route: 048
     Dates: start: 20050607, end: 20050613

REACTIONS (7)
  - ACTIVATED PARTIAL THROMBOPLASTIN TIME PROLONGED [None]
  - HEPATIC CIRRHOSIS [None]
  - HEPATITIS FULMINANT [None]
  - HEPATITIS TOXIC [None]
  - PLATELET COUNT ABNORMAL [None]
  - PROTHROMBIN TIME PROLONGED [None]
  - RED BLOOD CELL COUNT DECREASED [None]
